FAERS Safety Report 9680924 (Version 3)
Quarter: 2013Q4

REPORT INFORMATION
  Report Type: Spontaneous
  Country: GB (occurrence: GB)
  Receive Date: 20131111
  Receipt Date: 20131121
  Transmission Date: 20140711
  Serious: Yes (Hospitalization, Other)
  Sender: FDA-Public Use
  Company Number: GB-JNJFOC-20131103829

PATIENT
  Age: 82 Year
  Sex: Male

DRUGS (12)
  1. XARELTO [Suspect]
     Indication: ARRHYTHMIA SUPRAVENTRICULAR
     Route: 048
     Dates: start: 20131023, end: 20131025
  2. XARELTO [Suspect]
     Indication: CEREBROVASCULAR ACCIDENT PROPHYLAXIS
     Route: 048
     Dates: start: 20131023, end: 20131025
  3. BISOPROLOL [Concomitant]
     Route: 048
  4. FUROSEMIDE [Concomitant]
     Route: 048
  5. AMIODARONE [Concomitant]
     Route: 048
  6. ALLOPURINOL [Concomitant]
     Route: 048
  7. ALENDRONIC ACID [Concomitant]
     Route: 065
  8. CALCIUM+VITAMIN D [Concomitant]
     Route: 065
  9. ATORVASTATIN [Concomitant]
     Route: 048
  10. PARACETAMOL [Concomitant]
     Route: 048
  11. RAMIPRIL [Concomitant]
     Route: 065
  12. PREDNISOLON [Concomitant]
     Indication: MYALGIA
     Route: 065

REACTIONS (3)
  - Gastrointestinal haemorrhage [Recovering/Resolving]
  - Haematochezia [Recovering/Resolving]
  - Renal failure [Recovering/Resolving]
